FAERS Safety Report 12439256 (Version 3)
Quarter: 2016Q2

REPORT INFORMATION
  Report Type: Report from Study
  Country: US (occurrence: US)
  Receive Date: 20160606
  Receipt Date: 20160617
  Transmission Date: 20160815
  Serious: Yes (Hospitalization, Disabling, Other)
  Sender: FDA-Public Use
  Company Number: US-GILEAD-2016-0216996

PATIENT
  Age: 55 Year
  Sex: Female
  Weight: 117.91 kg

DRUGS (18)
  1. AMBRISENTAN [Suspect]
     Active Substance: AMBRISENTAN
     Indication: PULMONARY ARTERIAL HYPERTENSION
     Dosage: 10 MG, QD
     Route: 048
     Dates: start: 20130124
  2. AMBRISENTAN [Suspect]
     Active Substance: AMBRISENTAN
     Dosage: 10 MG, QD
     Route: 048
     Dates: start: 20160602
  3. LISINOPRIL. [Concomitant]
     Active Substance: LISINOPRIL
     Dosage: 5 MG, QD
     Route: 048
  4. LASIX [Concomitant]
     Active Substance: FUROSEMIDE
     Dosage: 40 MG, QD
     Route: 048
  5. ASPIRIN                            /00002701/ [Concomitant]
     Active Substance: ASPIRIN
     Dosage: 81 MG, QD
     Route: 048
  6. CHOLECALCIFEROL [Concomitant]
     Active Substance: CHOLECALCIFEROL
  7. INSULIN [Concomitant]
     Active Substance: INSULIN NOS
  8. GABAPENTIN. [Concomitant]
     Active Substance: GABAPENTIN
  9. DUONEB [Concomitant]
     Active Substance: ALBUTEROL SULFATE\IPRATROPIUM BROMIDE
  10. PRAVASTATIN [Concomitant]
     Active Substance: PRAVASTATIN\PRAVASTATIN SODIUM
     Dosage: 40 MG, QD
     Route: 048
  11. CLONAZEPAM. [Concomitant]
     Active Substance: CLONAZEPAM
  12. BUPROPION. [Concomitant]
     Active Substance: BUPROPION
  13. CITAPRAM [Concomitant]
  14. PANTOPRAZOLE [Concomitant]
     Active Substance: PANTOPRAZOLE SODIUM
  15. LOVENOX [Concomitant]
     Active Substance: ENOXAPARIN SODIUM
  16. MONTELUCAST [Concomitant]
     Active Substance: MONTELUKAST SODIUM
  17. PRAMIPEXOL [Concomitant]
     Active Substance: PRAMIPEXOLE
  18. LORATADINE. [Concomitant]
     Active Substance: LORATADINE

REACTIONS (5)
  - Ankle fracture [Not Recovered/Not Resolved]
  - Respiratory disorder [Unknown]
  - Fall [Not Recovered/Not Resolved]
  - Endotracheal intubation [Unknown]
  - Gastrointestinal tube insertion [Unknown]
